FAERS Safety Report 4965974-9 (Version None)
Quarter: 2006Q2

REPORT INFORMATION
  Report Type: 
  Country: None (occurrence: None)
  Receive Date: 20060403
  Receipt Date: 20060323
  Transmission Date: 20061013
  Serious: Yes (Hospitalization)
  Sender: FDA-Public Use
  Company Number: 2006040917

PATIENT
  Age: 55 Year
  Sex: Female

DRUGS (2)
  1. ESTRADIOL [Suspect]
     Indication: MENOPAUSE
     Dosage: 25 MCG (25 MCG, DAILY), VAGINAL
     Route: 067
     Dates: start: 20040610, end: 20040902
  2. KALCIPOS-D                (CALCIUM CARBONATE, COLECALCIFEROL) [Concomitant]

REACTIONS (6)
  - ABDOMINAL TENDERNESS [None]
  - ATOPY [None]
  - ENDOMETRIAL HYPERPLASIA [None]
  - ENDOMETRIOSIS [None]
  - TREATMENT NONCOMPLIANCE [None]
  - VAGINAL DISCHARGE [None]
